FAERS Safety Report 15009130 (Version 2)
Quarter: 2018Q4

REPORT INFORMATION
  Report Type: Report from Study
  Country: FR (occurrence: FR)
  Receive Date: 20180614
  Receipt Date: 20181214
  Transmission Date: 20190204
  Serious: Yes (Hospitalization, Other)
  Sender: FDA-Public Use
  Company Number: FR-BAXTER-2018BAX007300

PATIENT
  Age: 41 Year
  Sex: Male
  Weight: 83 kg

DRUGS (11)
  1. ENDOXAN 1000 MG, POUDRE POUR SOLUTIONINJECTABLE [Suspect]
     Active Substance: CYCLOPHOSPHAMIDE
     Indication: ANGIOCENTRIC LYMPHOMA
     Dosage: UNK
     Route: 042
     Dates: start: 20160811, end: 20181030
  2. AZT [Suspect]
     Active Substance: ZIDOVUDINE
     Indication: ANGIOCENTRIC LYMPHOMA
     Dosage: 600 MG, QD
     Route: 042
     Dates: start: 20160811
  3. ARA-C [Suspect]
     Active Substance: CYTARABINE
     Indication: LYMPHOMA
     Dosage: UNK
     Route: 065
     Dates: start: 20180629, end: 20181030
  4. CISPLATIN. [Suspect]
     Active Substance: CISPLATIN
     Indication: LYMPHOMA
     Dosage: UNK
     Route: 065
     Dates: start: 20180629, end: 20181030
  5. ADCETRIS [Suspect]
     Active Substance: BRENTUXIMAB VEDOTIN
     Indication: PRODUCT USED FOR UNKNOWN INDICATION
     Dosage: 145 MG, UNK
     Route: 042
     Dates: start: 20170110
  6. ADCETRIS [Suspect]
     Active Substance: BRENTUXIMAB VEDOTIN
     Dosage: UNK
     Route: 042
     Dates: start: 20180629, end: 20181030
  7. REVLIMID [Concomitant]
     Active Substance: LENALIDOMIDE
     Indication: LYMPHOMA
     Dosage: UNK
     Route: 065
  8. INTERFERON ALFA NOS [Suspect]
     Active Substance: INTERFERON ALFA-2A OR INTERFERON ALFA-2B
     Indication: PRODUCT USED FOR UNKNOWN INDICATION
     Dosage: UNK, QD , DOSE: 1 UNITS NOT REPORTED
     Route: 042
     Dates: start: 20160811
  9. ADCETRIS [Suspect]
     Active Substance: BRENTUXIMAB VEDOTIN
     Indication: ANGIOCENTRIC LYMPHOMA
     Dosage: 150 MG, UNK
     Route: 042
     Dates: start: 20160811, end: 20170207
  10. DEXAMETHASONE. [Suspect]
     Active Substance: DEXAMETHASONE
     Indication: LYMPHOMA
     Dosage: UNK
     Route: 065
     Dates: start: 20180629, end: 20181030
  11. DOXORUBICIN [Suspect]
     Active Substance: DOXORUBICIN
     Indication: ANGIOCENTRIC LYMPHOMA
     Dosage: UNK
     Route: 042
     Dates: start: 20160811, end: 20161206

REACTIONS (6)
  - Enteritis [Recovered/Resolved]
  - Haematotoxicity [Unknown]
  - Anaemia [Recovered/Resolved]
  - Neutropenia [Recovered/Resolved]
  - Weight decreased [Unknown]
  - Off label use [Unknown]

NARRATIVE: CASE EVENT DATE: 20160811
